FAERS Safety Report 4298794-1 (Version None)
Quarter: 2004Q1

REPORT INFORMATION
  Report Type: 
  Country: None (occurrence: None)
  Receive Date: 20040218
  Receipt Date: 20040211
  Transmission Date: 20041129
  Serious: Yes (Other)
  Sender: FDA-Public Use
  Company Number: WAES 0402GBR00136

PATIENT
  Age: 72 Year
  Sex: Male
  Weight: 90 kg

DRUGS (6)
  1. ASPIRIN [Concomitant]
     Route: 048
     Dates: start: 20010228
  2. ATENOLOL [Concomitant]
     Route: 048
     Dates: start: 20030903
  3. DILTIAZEM HYDROCHLORIDE [Concomitant]
     Route: 048
     Dates: start: 20001002
  4. ZETIA [Suspect]
     Indication: HYPERCHOLESTEROLAEMIA
     Route: 048
     Dates: start: 20030915, end: 20040130
  5. ISOSORBIDE MONONITRATE [Concomitant]
     Route: 048
     Dates: start: 19990526
  6. SIMVASTATIN [Concomitant]
     Route: 048
     Dates: start: 19990526

REACTIONS (1)
  - GLYCOSYLATED HAEMOGLOBIN INCREASED [None]
